FAERS Safety Report 11292151 (Version 1)
Quarter: 2015Q3

REPORT INFORMATION
  Report Type: Spontaneous
  Country: US (occurrence: US)
  Receive Date: 20150722
  Receipt Date: 20150722
  Transmission Date: 20151125
  Serious: Yes (Other)
  Sender: FDA-Public Use
  Company Number: US-JNJFOC-20150710622

PATIENT
  Sex: Female

DRUGS (1)
  1. REMICADE [Suspect]
     Active Substance: INFLIXIMAB
     Indication: PRODUCT USED FOR UNKNOWN INDICATION
     Dosage: INDUCTION DOSE.
     Route: 042

REACTIONS (7)
  - Loss of consciousness [Unknown]
  - Oxygen saturation decreased [Unknown]
  - Heart rate decreased [Recovering/Resolving]
  - Infusion related reaction [Unknown]
  - Cerebrovascular accident [Unknown]
  - Speech disorder [Unknown]
  - Ocular hyperaemia [Unknown]
